FAERS Safety Report 23919489 (Version 1)
Quarter: 2024Q2

REPORT INFORMATION
  Report Type: Spontaneous
  Country: US (occurrence: None)
  Receive Date: 20240529
  Receipt Date: 20240529
  Transmission Date: 20240716
  Serious: Yes (Hospitalization)
  Sender: FDA-Public Use
  Company Number: None

PATIENT
  Age: 73 Year
  Sex: Male
  Weight: 79 kg

DRUGS (1)
  1. IRON DEXTRAN [Suspect]
     Active Substance: IRON DEXTRAN
     Indication: Fatigue
     Dates: start: 20240514, end: 20240516

REACTIONS (8)
  - Anaphylactic reaction [None]
  - Hypotension [None]
  - Dizziness [None]
  - Hyperhidrosis [None]
  - Feeling hot [None]
  - Chest pain [None]
  - Cardio-respiratory arrest [None]
  - Feeling cold [None]

NARRATIVE: CASE EVENT DATE: 20240514
